FAERS Safety Report 7464905-X (Version None)
Quarter: 2011Q2

REPORT INFORMATION
  Report Type: 
  Country: None (occurrence: None)
  Receive Date: 20110509
  Receipt Date: 20110324
  Transmission Date: 20111010
  Serious: Yes (Hospitalization)
  Sender: FDA-Public Use
  Company Number: PA-BAYER-201029826NA

PATIENT
  Sex: Female
  Weight: 71.655 kg

DRUGS (2)
  1. YASMIN [Suspect]
     Indication: PRODUCT USED FOR UNKNOWN INDICATION
  2. YAZ [Suspect]
     Indication: ACNE

REACTIONS (2)
  - INJURY [None]
  - PULMONARY EMBOLISM [None]
